APPROVED DRUG PRODUCT: CLARAVIS
Active Ingredient: ISOTRETINOIN
Strength: 20MG
Dosage Form/Route: CAPSULE;ORAL
Application: A076135 | Product #002 | TE Code: AB1
Applicant: TEVA PHARMACEUTICALS USA
Approved: Apr 11, 2003 | RLD: No | RS: No | Type: RX